FAERS Safety Report 8484006-1 (Version None)
Quarter: 2012Q3

REPORT INFORMATION
  Report Type: 
  Country: None (occurrence: None)
  Receive Date: 20120703
  Receipt Date: 20120524
  Transmission Date: 20120928
  Serious: No
  Sender: FDA-Public Use
  Company Number: US-PFIZER INC-2012155845

PATIENT
  Age: 70 Year
  Sex: Female

DRUGS (1)
  1. FLECTOR [Suspect]
     Indication: OSTEOARTHRITIS
     Dosage: UNK
     Route: 061

REACTIONS (1)
  - DRUG INEFFECTIVE [None]
